FAERS Safety Report 12956005 (Version 1)
Quarter: 2016Q4

REPORT INFORMATION
  Report Type: Not Available
  Country: None (occurrence: US)
  Receive Date: 20161118
  Receipt Date: 20161118
  Transmission Date: 20170207
  Serious: No
  Sender: FDA-Public Use
  Company Number: US-AKORN-43298

PATIENT
  Sex: Female

DRUGS (1)
  1. ATROPINE SULFATE 1% OPHTHALMIC SOLUTION, USP [Suspect]
     Active Substance: ATROPINE SULFATE

REACTIONS (3)
  - Product dropper issue [Unknown]
  - Accidental overdose [Unknown]
  - Product use issue [Unknown]
